FAERS Safety Report 21958367 (Version 2)
Quarter: 2023Q1

REPORT INFORMATION
  Report Type: Report from Study
  Country: PA (occurrence: PA)
  Receive Date: 20230206
  Receipt Date: 20230220
  Transmission Date: 20230417
  Serious: Yes (Other)
  Sender: FDA-Public Use
  Company Number: PA-002147023-NVSC2023PA025686

PATIENT
  Sex: Female

DRUGS (8)
  1. KISQALI [Suspect]
     Active Substance: RIBOCICLIB
     Indication: Breast cancer metastatic
     Dosage: 400 MG, QD, 2 (400MG)
     Route: 048
     Dates: start: 2019
  2. FULVESTRANT [Suspect]
     Active Substance: FULVESTRANT
     Indication: Product used for unknown indication
     Dosage: 1 DOSAGE FORM, QMO
     Route: 065
     Dates: start: 2019
  3. INDAPAMIDE [Concomitant]
     Active Substance: INDAPAMIDE
     Indication: Blood pressure measurement
     Dosage: 1 X 5 MG (STARTED APPROX. 10 TO 12 YEARS AGO)
     Route: 065
  4. CALCIUM\CHOLECALCIFEROL [Concomitant]
     Active Substance: CALCIUM\CHOLECALCIFEROL
     Indication: Vitamin supplementation
     Dosage: 2 DOSAGE FORM, QD (STARTED APPROX 12 YEARS AGO)
     Route: 065
  5. LEVOTHYROXINE [Concomitant]
     Active Substance: LEVOTHYROXINE
     Indication: Product used for unknown indication
     Dosage: 1 X 100MG (ONCE DAILY IN THE MORNING BEFORE BREAKFAST) (STARTED APPROX. 10 YEARS AGO )
     Route: 065
  6. VITAMIN C [Concomitant]
     Active Substance: ASCORBIC ACID
     Indication: Product used for unknown indication
     Dosage: UNK
     Route: 065
  7. VITAMINS NOS [Concomitant]
     Active Substance: VITAMINS
     Indication: Product used for unknown indication
     Dosage: UNK
     Route: 065
  8. ZINC [Concomitant]
     Active Substance: ZINC
     Indication: Product used for unknown indication
     Dosage: UNK
     Route: 065

REACTIONS (2)
  - Metastases to bone [Unknown]
  - Alopecia [Not Recovered/Not Resolved]

NARRATIVE: CASE EVENT DATE: 20190101
